FAERS Safety Report 4615158-9 (Version None)
Quarter: 2005Q1

REPORT INFORMATION
  Report Type: 
  Country: None (occurrence: None)
  Receive Date: 20050317
  Receipt Date: 20050223
  Transmission Date: 20050727
  Serious: Yes (Other)
  Sender: FDA-Public Use
  Company Number: 10437

PATIENT
  Sex: Female

DRUGS (2)
  1. CARBOPLATIN [Suspect]
     Indication: CERVIX CARCINOMA
     Dosage: 2 AUC WEEKLY IV
     Route: 042
  2. PACLITAXEL [Suspect]
     Indication: CERVIX CARCINOMA
     Dosage: 50 MG/M2 WEEKLY

REACTIONS (1)
  - NEUTROPENIA [None]
